FAERS Safety Report 8511459 (Version 2)
Quarter: 2017Q2

REPORT INFORMATION
  Report Type: Spontaneous
  Country: US (occurrence: US)
  Receive Date: 20120413
  Receipt Date: 20170518
  Transmission Date: 20170830
  Serious: Yes (Disabling, Other)
  Sender: FDA-Public Use
  Company Number: US-ASTRAZENECA-2010SE24648

PATIENT
  Age: 75 Year
  Sex: Female

DRUGS (2)
  1. SYMBICORT [Suspect]
     Active Substance: BUDESONIDE\FORMOTEROL FUMARATE DIHYDRATE
     Dosage: 160/4.5MCG UNKNOWN
     Route: 055
  2. NEXIUM [Suspect]
     Active Substance: ESOMEPRAZOLE MAGNESIUM
     Dosage: TAKING 2 CAPSULES PER DAY INSTEAD OF 1 CAPSULE
     Route: 048

REACTIONS (5)
  - Macular degeneration [Unknown]
  - Adverse event [Unknown]
  - Blood cholesterol abnormal [Unknown]
  - Blindness [Unknown]
  - Extra dose administered [Unknown]
